FAERS Safety Report 17797921 (Version 1)
Quarter: 2020Q2

REPORT INFORMATION
  Report Type: Spontaneous
  Country: US (occurrence: US)
  Receive Date: 20200516
  Receipt Date: 20200516
  Transmission Date: 20200714
  Serious: Yes (Disabling)
  Sender: FDA-Public Use
  Company Number: None

PATIENT
  Age: 64 Year
  Sex: Male
  Weight: 117 kg

DRUGS (3)
  1. MULTIVITAMIN [Concomitant]
     Active Substance: VITAMINS
  2. LEVOTHYROXINE. [Suspect]
     Active Substance: LEVOTHYROXINE
     Indication: HYPOTHYROIDISM
     Dosage: ?          QUANTITY:3 TABLET(S);?
     Route: 048
  3. LEVOTHYROXINE TABLET (PEACH COLORED AND ROUND) [Suspect]
     Active Substance: LEVOTHYROXINE SODIUM
     Indication: HYPOTHYROIDISM
     Dosage: ?          QUANTITY:110 TABLET(S);?
     Route: 048
     Dates: start: 20190907, end: 20191215

REACTIONS (6)
  - Product substitution issue [None]
  - Disability [None]
  - Abnormal behaviour [None]
  - Product physical issue [None]
  - Impaired work ability [None]
  - Blood thyroid stimulating hormone increased [None]

NARRATIVE: CASE EVENT DATE: 20191212
